FAERS Safety Report 6549608-8 (Version None)
Quarter: 2010Q1

REPORT INFORMATION
  Report Type: 
  Country: None (occurrence: None)
  Receive Date: 20100125
  Receipt Date: 20100115
  Transmission Date: 20100710
  Serious: Yes (Other)
  Sender: FDA-Public Use
  Company Number: CH-ROCHE-656503

PATIENT
  Age: 64 Year
  Sex: Female

DRUGS (6)
  1. BEVACIZUMAB [Suspect]
     Route: 042
     Dates: start: 20090624
  2. BEVACIZUMAB [Suspect]
     Dosage: DISCONTINUED AFTER 8 CYCLES
     Route: 042
     Dates: start: 20090909, end: 20100105
  3. CAPECITABINE [Suspect]
     Route: 048
  4. PACLITAXEL [Concomitant]
     Dosage: DOSE: 90MG/M2
     Dates: end: 20090101
  5. PACLITAXEL [Concomitant]
     Dosage: DOSE REDUCED
     Dates: start: 20090826, end: 20090909
  6. NEXIUM [Concomitant]

REACTIONS (3)
  - HYPERTENSION [None]
  - MALIGNANT NEOPLASM PROGRESSION [None]
  - POLYNEUROPATHY [None]
